FAERS Safety Report 7265112-6 (Version None)
Quarter: 2011Q1

REPORT INFORMATION
  Report Type: 
  Country: None (occurrence: None)
  Receive Date: 20110131
  Receipt Date: 20110120
  Transmission Date: 20110831
  Serious: Yes (Hospitalization)
  Sender: FDA-Public Use
  Company Number: GR-ASTRAZENECA-2011SE03992

PATIENT
  Age: 31 Year
  Sex: Female

DRUGS (5)
  1. RIVOTRIL [Concomitant]
     Indication: BIPOLAR DISORDER
  2. SEROQUEL XR [Suspect]
     Indication: BIPOLAR DISORDER
     Route: 048
  3. ZOXIL [Concomitant]
     Indication: BIPOLAR DISORDER
  4. SEROQUEL XR [Suspect]
     Route: 048
     Dates: start: 20110110, end: 20110120
  5. TAVOR [Concomitant]
     Indication: BIPOLAR DISORDER

REACTIONS (2)
  - FACE OEDEMA [None]
  - ERYTHEMA [None]
